FAERS Safety Report 25725163 (Version 1)
Quarter: 2025Q3

REPORT INFORMATION
  Report Type: Spontaneous
  Country: EU (occurrence: EU)
  Receive Date: 20250826
  Receipt Date: 20250826
  Transmission Date: 20251021
  Serious: Yes (Life-Threatening)
  Sender: REGENERON
  Company Number: None

PATIENT
  Age: 68 Year
  Sex: Female

DRUGS (1)
  1. EYLEA [Suspect]
     Active Substance: AFLIBERCEPT
     Indication: Age-related macular degeneration
     Dosage: 1 DF, Q1MON, 40 MG/ML
     Route: 031
     Dates: start: 20250425, end: 20250526

REACTIONS (1)
  - Ocular vasculitis [Recovering/Resolving]

NARRATIVE: CASE EVENT DATE: 20250526
